FAERS Safety Report 19469177 (Version 1)
Quarter: 2021Q2

REPORT INFORMATION
  Report Type: Spontaneous
  Country: US (occurrence: US)
  Receive Date: 20210628
  Receipt Date: 20210628
  Transmission Date: 20210717
  Serious: No
  Sender: FDA-Public Use
  Company Number: US-ELI_LILLY_AND_COMPANY-US202106009000

PATIENT
  Sex: Female

DRUGS (3)
  1. RYBELSUS [Concomitant]
     Active Substance: SEMAGLUTIDE
     Indication: BLOOD GLUCOSE
  2. TRULICITY [Suspect]
     Active Substance: DULAGLUTIDE
     Dosage: 0.75 MG, UNKNOWN
     Route: 065
  3. TRULICITY [Suspect]
     Active Substance: DULAGLUTIDE
     Indication: PRODUCT USED FOR UNKNOWN INDICATION
     Dosage: 0.75 MG, UNKNOWN
     Route: 065

REACTIONS (9)
  - Thirst [Recovering/Resolving]
  - Visual impairment [Recovering/Resolving]
  - Asthenia [Recovering/Resolving]
  - Fall [Recovering/Resolving]
  - Feeling abnormal [Recovering/Resolving]
  - Weight increased [Recovering/Resolving]
  - Pollakiuria [Recovering/Resolving]
  - Blood glucose increased [Recovering/Resolving]
  - Mobility decreased [Recovering/Resolving]
